FAERS Safety Report 9056793 (Version 2)
Quarter: 2013Q2

REPORT INFORMATION
  Report Type: Report from Study
  Country: CA (occurrence: CA)
  Receive Date: 20130201
  Receipt Date: 20130408
  Transmission Date: 20140414
  Serious: Yes (Death, Hospitalization, Other)
  Sender: FDA-Public Use
  Company Number: CA-ABBOTT-13P-028-1034477-00

PATIENT
  Age: 77 Year
  Sex: Male
  Weight: 131.66 kg

DRUGS (1)
  1. LUPRON DEPOT [Suspect]
     Indication: PROSTATE CANCER
     Dosage: 3 MONTH DEPOT
     Dates: start: 20080929

REACTIONS (7)
  - General physical health deterioration [Fatal]
  - Prostate cancer [Fatal]
  - Prostate cancer metastatic [Unknown]
  - Metastatic pain [Unknown]
  - Blood alkaline phosphatase increased [Unknown]
  - Blood lactate dehydrogenase increased [Unknown]
  - Constipation [Unknown]
